FAERS Safety Report 7724970-9 (Version None)
Quarter: 2011Q3

REPORT INFORMATION
  Report Type: 
  Country: None (occurrence: None)
  Receive Date: 20110901
  Receipt Date: 20110830
  Transmission Date: 20111222
  Serious: Yes (Death, Hospitalization, Other)
  Sender: FDA-Public Use
  Company Number: TW-ABBOTT-11P-153-0850326-00

PATIENT
  Sex: Female
  Weight: 60 kg

DRUGS (1)
  1. HUMIRA [Suspect]
     Indication: RHEUMATOID ARTHRITIS
     Route: 058
     Dates: start: 20100125, end: 20110628

REACTIONS (7)
  - PYREXIA [None]
  - LUNG INFECTION [None]
  - DYSPNOEA [None]
  - URINARY TRACT INFECTION [None]
  - ACINETOBACTER BACTERAEMIA [None]
  - PNEUMONIA [None]
  - NOSOCOMIAL INFECTION [None]
